APPROVED DRUG PRODUCT: STAVUDINE
Active Ingredient: STAVUDINE
Strength: 1MG/ML
Dosage Form/Route: FOR SOLUTION;ORAL
Application: A077774 | Product #001
Applicant: AUROBINDO PHARMA LTD
Approved: Dec 29, 2008 | RLD: No | RS: No | Type: DISCN